FAERS Safety Report 5748763-7 (Version None)
Quarter: 2008Q2

REPORT INFORMATION
  Report Type: 
  Country: None (occurrence: None)
  Receive Date: 20080522
  Receipt Date: 20080505
  Transmission Date: 20081010
  Serious: Yes (Death)
  Sender: FDA-Public Use
  Company Number: 2008AL003486

PATIENT
  Age: 76 Year
  Sex: Female
  Weight: 86.1834 kg

DRUGS (5)
  1. DIGOXIN [Suspect]
     Indication: CARDIAC FAILURE CONGESTIVE
     Dosage: 0.25MG DAILY PO
     Route: 048
     Dates: start: 20000101, end: 20080101
  2. SOTANOL [Concomitant]
  3. OXYGEN [Concomitant]
  4. UNSPECIFIED DRUG-ALZHEIMERS [Concomitant]
  5. UNSPECIFIED DRUG-DIABETES MELLITUS [Concomitant]

REACTIONS (4)
  - CARDIAC FAILURE CONGESTIVE [None]
  - CONDITION AGGRAVATED [None]
  - DEMENTIA ALZHEIMER'S TYPE [None]
  - RESPIRATORY FAILURE [None]
